FAERS Safety Report 7721433-1 (Version None)
Quarter: 2011Q3

REPORT INFORMATION
  Report Type: 
  Country: None (occurrence: None)
  Receive Date: 20110831
  Receipt Date: 20110823
  Transmission Date: 20111222
  Serious: Yes (Life-Threatening)
  Sender: FDA-Public Use
  Company Number: JP-ROCHE-799053

PATIENT
  Age: 62 Year
  Sex: Female

DRUGS (6)
  1. HERCEPTIN [Suspect]
     Route: 041
     Dates: start: 20110705, end: 20110705
  2. METFFORMIN HYDROCHLORIDE [Suspect]
     Route: 048
  3. ASPIRIN [Suspect]
     Dosage: DOSAGE IS UNCERTAIN
     Route: 048
  4. CRESTOR [Suspect]
     Dosage: DOSAGE IS UNCERTAIN
     Route: 048
  5. HERCEPTIN [Suspect]
     Indication: BREAST CANCER
     Dosage: NOTE: DOSAGE IS UNCERTAIN
     Route: 041
  6. NOVORAPID [Suspect]
     Dosage: DOSAGE IS UNCERTAIN
     Route: 058

REACTIONS (2)
  - CEREBRAL INFARCTION [None]
  - INFUSION RELATED REACTION [None]
